FAERS Safety Report 7426013-3 (Version None)
Quarter: 2011Q2

REPORT INFORMATION
  Report Type: 
  Country: None (occurrence: None)
  Receive Date: 20110420
  Receipt Date: 20101027
  Transmission Date: 20111010
  Serious: Yes (Other)
  Sender: FDA-Public Use
  Company Number: US-BAYER-201020539NA

PATIENT
  Sex: Female
  Weight: 65.76 kg

DRUGS (8)
  1. YAZ [Suspect]
     Indication: ACNE
  2. MULTI-VITAMIN [Concomitant]
     Dosage: UNK UNK, QD
     Dates: start: 20040101
  3. MOTRIN [Concomitant]
  4. YASMIN [Suspect]
     Indication: ACNE
  5. LOESTRIN 1.5/30 [Concomitant]
     Indication: ORAL CONTRACEPTION
     Dosage: UNK
     Dates: start: 20090701
  6. NAPROXEN [Concomitant]
     Dosage: UNK
     Dates: start: 20080101, end: 20100101
  7. YAZ [Suspect]
     Indication: PREMENSTRUAL SYNDROME
     Dosage: UNK UNK, QD
     Route: 048
     Dates: start: 20090701, end: 20090801
  8. YASMIN [Suspect]
     Indication: PREMENSTRUAL SYNDROME
     Dosage: UNK UNK, QD
     Route: 048
     Dates: start: 20090701, end: 20090801

REACTIONS (16)
  - GAIT DISTURBANCE [None]
  - DIZZINESS [None]
  - ANGER [None]
  - MALAISE [None]
  - ANXIETY [None]
  - HYPERTENSION [None]
  - PARANOIA [None]
  - SPEECH DISORDER [None]
  - CONFUSIONAL STATE [None]
  - HEADACHE [None]
  - MOOD ALTERED [None]
  - TACHYCARDIA [None]
  - PALPITATIONS [None]
  - DEPRESSION [None]
  - HEART RATE INCREASED [None]
  - INSOMNIA [None]
